FAERS Safety Report 9367768 (Version 1)
Quarter: 2013Q2

REPORT INFORMATION
  Report Type: Spontaneous
  Country: US (occurrence: US)
  Receive Date: 20130625
  Receipt Date: 20130625
  Transmission Date: 20140414
  Serious: Yes (Other)
  Sender: FDA-Public Use
  Company Number: US-ASTELLAS-2012US003204

PATIENT
  Age: 73 Year
  Sex: Female
  Weight: 68 kg

DRUGS (11)
  1. VESICARE [Suspect]
     Indication: HYPERTONIC BLADDER
     Dosage: 5 MG, UID/QD
     Route: 048
     Dates: start: 20120619
  2. TOVIAZ [Suspect]
     Indication: PRODUCT USED FOR UNKNOWN INDICATION
     Dosage: UNK
     Route: 065
  3. PRAVASTATIN [Suspect]
     Indication: BLOOD CHOLESTEROL INCREASED
     Dosage: UNK
     Route: 048
     Dates: start: 2013, end: 2013
  4. OXYBUTYNIN [Suspect]
     Indication: PRODUCT USED FOR UNKNOWN INDICATION
     Dosage: UNK
     Route: 065
  5. ZETIA [Suspect]
     Indication: PRODUCT USED FOR UNKNOWN INDICATION
     Dosage: UNK
     Route: 065
  6. FOSAMAX [Suspect]
     Indication: PRODUCT USED FOR UNKNOWN INDICATION
     Dosage: UNK
     Route: 065
  7. DETROL LA [Suspect]
     Indication: HYPERTONIC BLADDER
     Dosage: 2 MG, UNKNOWN/D
     Route: 048
  8. DETROL LA [Suspect]
     Dosage: 4 MG, UNKNOWN/D
     Route: 065
  9. IBANDRONATE SODIUM [Suspect]
     Indication: PRODUCT USED FOR UNKNOWN INDICATION
     Dosage: UNK
     Route: 065
  10. ACTONEL [Concomitant]
     Indication: BONE DISORDER
     Dosage: UNK
     Route: 065
  11. UNSPECIFIED SUPPOSITORY FOR HEMORRHOIDS [Concomitant]
     Indication: HAEMORRHOIDS
     Dosage: UNK
     Route: 065

REACTIONS (16)
  - Gait disturbance [Unknown]
  - Musculoskeletal chest pain [Recovered/Resolved]
  - Chest discomfort [Unknown]
  - Chest pain [Recovered/Resolved]
  - Flatulence [Recovered/Resolved]
  - Flushing [Recovered/Resolved]
  - Limb discomfort [Recovered/Resolved]
  - Musculoskeletal discomfort [Recovered/Resolved]
  - Abdominal distension [Recovered/Resolved]
  - Oropharyngeal pain [Unknown]
  - Abdominal pain upper [Unknown]
  - Constipation [Recovered/Resolved]
  - Dry mouth [Recovered/Resolved]
  - Fatigue [Recovered/Resolved]
  - Oedema peripheral [Unknown]
  - Gastrooesophageal reflux disease [Unknown]
